FAERS Safety Report 6108648-3 (Version None)
Quarter: 2009Q1

REPORT INFORMATION
  Report Type: 
  Country: None (occurrence: None)
  Receive Date: 20090305
  Receipt Date: 20090217
  Transmission Date: 20090719
  Serious: Yes (Other)
  Sender: FDA-Public Use
  Company Number: 2009AL001199

PATIENT
  Sex: Male

DRUGS (1)
  1. FINASTERIDE [Suspect]
     Indication: ALOPECIA
     Dosage: 1 MG; PO
     Route: 048
     Dates: start: 20080726

REACTIONS (3)
  - COLD SWEAT [None]
  - TINNITUS [None]
  - VISUAL IMPAIRMENT [None]
